FAERS Safety Report 4666377-7 (Version None)
Quarter: 2005Q2

REPORT INFORMATION
  Report Type: 
  Country: None (occurrence: None)
  Receive Date: 20050518
  Receipt Date: 20050513
  Transmission Date: 20051028
  Serious: Yes (Hospitalization)
  Sender: FDA-Public Use
  Company Number: ZONI002153

PATIENT
  Age: 19 Year
  Sex: Female

DRUGS (2)
  1. ZONEGRAN [Suspect]
     Indication: PARTIAL SEIZURES
     Dosage: SEE IMAGE
     Route: 048
     Dates: start: 20040101, end: 20050301
  2. ORAL CONTRACEPTIVES (ORAL CONTRACEPTIVE NOS) [Concomitant]

REACTIONS (9)
  - CARDIAC ARREST [None]
  - CHEST PAIN [None]
  - FALL [None]
  - FIBRIN D DIMER INCREASED [None]
  - HYPOCOAGULABLE STATE [None]
  - LIVER FUNCTION TEST ABNORMAL [None]
  - MALAISE [None]
  - PULMONARY EMBOLISM [None]
  - TROPONIN INCREASED [None]
